FAERS Safety Report 7003365-X (Version None)
Quarter: 2010Q3

REPORT INFORMATION
  Report Type: 
  Country: None (occurrence: None)
  Receive Date: 20100920
  Receipt Date: 20100907
  Transmission Date: 20110219
  Serious: No
  Sender: FDA-Public Use
  Company Number: US-PFIZER INC-2010113664

PATIENT
  Sex: Female
  Weight: 65.76 kg

DRUGS (1)
  1. ARTHROTEC [Suspect]
     Indication: ARTHRITIS
     Dosage: 75/200 MG/MCG, 2X/DAY
     Route: 048
     Dates: start: 20020101

REACTIONS (1)
  - ARTHRITIS [None]
